FAERS Safety Report 4539624-X (Version None)
Quarter: 2004Q4

REPORT INFORMATION
  Report Type: 
  Country: None (occurrence: None)
  Receive Date: 20041228
  Receipt Date: 20041125
  Transmission Date: 20050328
  Serious: Yes (Hospitalization)
  Sender: FDA-Public Use
  Company Number: PHBS2004JP15939

PATIENT
  Age: 94 Year
  Sex: Male

DRUGS (2)
  1. LAMISIL [Suspect]
     Dosage: 125 MG/D
     Route: 048
     Dates: start: 20040926, end: 20041012
  2. NIFEDIPINE [Concomitant]
     Dosage: 40 MG/D
     Route: 048
     Dates: end: 20041015

REACTIONS (12)
  - ASPARTATE AMINOTRANSFERASE INCREASED [None]
  - BLOOD CREATINE PHOSPHOKINASE INCREASED [None]
  - DERMATITIS EXFOLIATIVE [None]
  - ECZEMA [None]
  - EOSINOPHILIA [None]
  - ERYTHEMA [None]
  - GENERALISED OEDEMA [None]
  - HAEMATOCRIT DECREASED [None]
  - HAEMOGLOBIN DECREASED [None]
  - RASH [None]
  - RED BLOOD CELL COUNT DECREASED [None]
  - SKIN DESQUAMATION [None]
